FAERS Safety Report 7878573-6 (Version None)
Quarter: 2011Q4

REPORT INFORMATION
  Report Type: 
  Country: None (occurrence: None)
  Receive Date: 20111014
  Receipt Date: 20110225
  Transmission Date: 20120403
  Serious: Yes (Other)
  Sender: FDA-Public Use
  Company Number: 1000013431

PATIENT
  Age: 18 Year
  Sex: Female

DRUGS (2)
  1. BIRTH CONTROL (NOS)  (CONTRACEPTIVES NOS) (CONTRACEPTATIVES NOS) [Concomitant]
  2. LEXAPRO [Suspect]
     Indication: DEPRESSION
     Dosage: 10 MG (10 MG, 1 IN 1 D), ORAL
     Route: 048
     Dates: start: 20100201, end: 20100420

REACTIONS (7)
  - IRRITABILITY [None]
  - GLYCOSYLATED HAEMOGLOBIN INCREASED [None]
  - TYPE 2 DIABETES MELLITUS [None]
  - HYPOMANIA [None]
  - DEPRESSION [None]
  - SOMNOLENCE [None]
  - GLYCOSYLATED HAEMOGLOBIN DECREASED [None]
